FAERS Safety Report 20516777 (Version 1)
Quarter: 2022Q1

REPORT INFORMATION
  Report Type: Spontaneous
  Country: CN (occurrence: CN)
  Receive Date: 20220225
  Receipt Date: 20220225
  Transmission Date: 20220423
  Serious: Yes (Other)
  Sender: FDA-Public Use
  Company Number: CN-ABBVIE-22K-035-4291792-00

PATIENT
  Age: 5 Year
  Sex: Female

DRUGS (4)
  1. VALPROATE SODIUM [Suspect]
     Active Substance: VALPROATE SODIUM
     Indication: Epilepsy
     Route: 048
     Dates: start: 20190220, end: 20190611
  2. LEVETIRACETAM [Concomitant]
     Active Substance: LEVETIRACETAM
     Indication: Product used for unknown indication
     Route: 065
     Dates: start: 20180824, end: 20190618
  3. CREATINE [Concomitant]
     Active Substance: CREATINE
     Indication: Product used for unknown indication
     Route: 065
  4. CREATINE [Concomitant]
     Active Substance: CREATINE
     Indication: Product used for unknown indication
     Route: 050
     Dates: start: 20190605, end: 20190618

REACTIONS (1)
  - Hyperammonaemia [Recovered/Resolved]

NARRATIVE: CASE EVENT DATE: 20190605
